FAERS Safety Report 10364096 (Version 2)
Quarter: 2014Q3

REPORT INFORMATION
  Report Type: Spontaneous
  Country: US (occurrence: US)
  Receive Date: 20140806
  Receipt Date: 20140917
  Transmission Date: 20150326
  Serious: No
  Sender: FDA-Public Use
  Company Number: US-009507513-1407USA010189

PATIENT
  Age: 69 Year
  Sex: Female
  Weight: 121.54 kg

DRUGS (3)
  1. REBETOL [Suspect]
     Active Substance: RIBAVIRIN
     Route: 048
  2. SOVALDI [Suspect]
     Active Substance: SOFOSBUVIR
  3. PEGINTRON [Suspect]
     Active Substance: PEGINTERFERON ALFA-2B
     Indication: HEPATITIS C
     Dosage: 150MCG, WEEKLY; REDIPEN
     Route: 058
     Dates: start: 20140604, end: 201409

REACTIONS (3)
  - Incorrect product storage [Unknown]
  - Confusional state [Recovered/Resolved]
  - Medication error [Unknown]

NARRATIVE: CASE EVENT DATE: 201407
